FAERS Safety Report 24303571 (Version 1)
Quarter: 2024Q3

REPORT INFORMATION
  Report Type: Spontaneous
  Country: US (occurrence: None)
  Receive Date: 20240909
  Receipt Date: 20240909
  Transmission Date: 20241017
  Serious: Yes (Other)
  Sender: Public
  Company Number: None

PATIENT
  Age: 73 Year
  Sex: Female

DRUGS (1)
  1. FASENRA [Suspect]
     Active Substance: BENRALIZUMAB
     Indication: Asthma
     Dosage: 30 MG EVERY 8 WEEKS SUBCUTANEOUS ?
     Route: 058
     Dates: start: 20240516, end: 20240517

REACTIONS (1)
  - Urticaria [None]

NARRATIVE: CASE EVENT DATE: 20240517
